FAERS Safety Report 22178577 (Version 1)
Quarter: 2023Q2

REPORT INFORMATION
  Report Type: Spontaneous
  Country: US (occurrence: US)
  Receive Date: 20230405
  Receipt Date: 20230405
  Transmission Date: 20230722
  Serious: No
  Sender: FDA-Public Use
  Company Number: US-AMYLYX PHARMACEUTICALS, INC-AMX-001911

PATIENT
  Sex: Female

DRUGS (1)
  1. RELYVRIO [Suspect]
     Active Substance: SODIUM PHENYLBUTYRATE\TAURURSODIOL
     Dosage: ONE SACHET ONCE DAILY FOR 3 WEEKS, THEN ONE SACHET TWICE DAILY
     Route: 048

REACTIONS (1)
  - Diarrhoea [Unknown]
